FAERS Safety Report 5533539-6 (Version None)
Quarter: 2007Q4

REPORT INFORMATION
  Report Type: 
  Country: None (occurrence: None)
  Receive Date: 20071204
  Receipt Date: 20071128
  Transmission Date: 20080405
  Serious: Yes (Congenital Anomaly)
  Sender: FDA-Public Use
  Company Number: FR-BRISTOL-MYERS SQUIBB COMPANY-13999230

PATIENT
  Age: 1 Day
  Sex: Male
  Weight: 3 kg

DRUGS (2)
  1. ABILIFY [Suspect]
     Route: 064
  2. HALDOL [Suspect]
     Route: 064

REACTIONS (7)
  - ATRIAL SEPTAL DEFECT [None]
  - COLOBOMA [None]
  - CONGENITAL MULTIPLEX ARTHROGRYPOSIS [None]
  - HYPERTELORISM OF ORBIT [None]
  - KIDNEY MALFORMATION [None]
  - MICROPHTHALMOS [None]
  - PREGNANCY [None]
